FAERS Safety Report 4504655-2 (Version None)
Quarter: 2004Q4

REPORT INFORMATION
  Report Type: 
  Country: None (occurrence: None)
  Receive Date: 20041116
  Receipt Date: 20041018
  Transmission Date: 20050328
  Serious: Yes (Death)
  Sender: FDA-Public Use
  Company Number: M2004.1652

PATIENT
  Age: 56 Year
  Sex: Male

DRUGS (2)
  1. DIAZEPAM, UNK, UNKNOWN MANUFACTURER [Suspect]
  2. MIRTAZAPINE, UNK, UNKNOWN MANUFACTURER (CON'T IN SEC B.5) [Suspect]

REACTIONS (1)
  - BLOOD ALCOHOL INCREASED [None]
